FAERS Safety Report 5505745-8 (Version None)
Quarter: 2007Q4

REPORT INFORMATION
  Report Type: 
  Country: None (occurrence: None)
  Receive Date: 20071102
  Receipt Date: 20071024
  Transmission Date: 20080405
  Serious: Yes (Hospitalization)
  Sender: FDA-Public Use
  Company Number: GR-ABBOTT-07P-066-0422049-00

PATIENT
  Age: 59 Year
  Sex: Female
  Weight: 65 kg

DRUGS (11)
  1. ZEMPLAR [Suspect]
     Indication: HYPERPARATHYROIDISM SECONDARY
     Route: 042
     Dates: start: 20070314
  2. SACCHARATED IRON OXIDE [Concomitant]
     Indication: ANAEMIA
     Route: 042
     Dates: start: 20060401
  3. LEVOCARNITINE [Concomitant]
     Indication: CARNITINE DECREASED
     Route: 042
     Dates: start: 20050101
  4. CERNEVIT-12 [Concomitant]
     Indication: HYPOVITAMINOSIS
     Route: 042
     Dates: start: 20050101
  5. DILTIAZEM HYDROCHLORIDE [Concomitant]
     Indication: CORONARY ARTERY DISEASE
     Route: 048
     Dates: start: 20051001
  6. DILTIAZEM HYDROCHLORIDE [Concomitant]
     Indication: HYPERTENSION
  7. CLOPIDOGREL BISULFATE [Concomitant]
     Indication: THROMBOSIS PROPHYLAXIS
     Route: 048
     Dates: start: 20030601
  8. RANITIDINE HYDROCHLORIDE [Concomitant]
     Indication: GASTRITIS
     Route: 048
     Dates: start: 20061101
  9. SEVELAMER [Concomitant]
     Indication: HYPERPHOSPHATAEMIA
     Route: 048
     Dates: start: 20051001, end: 20070704
  10. SEVELAMER [Concomitant]
     Route: 048
     Dates: start: 20070704
  11. DARBEPOETIN ALFA [Concomitant]
     Indication: ANAEMIA
     Route: 042
     Dates: start: 20070412, end: 20070510

REACTIONS (2)
  - UTERINE HAEMORRHAGE [None]
  - VAGINAL HAEMORRHAGE [None]
